FAERS Safety Report 18182384 (Version 1)
Quarter: 2020Q3

REPORT INFORMATION
  Report Type: Report from Study
  Country: IN (occurrence: IN)
  Receive Date: 20200821
  Receipt Date: 20200821
  Transmission Date: 20201103
  Serious: Yes (Death)
  Sender: FDA-Public Use
  Company Number: IN-MYLANLABS-2020M1072946

PATIENT
  Sex: Male

DRUGS (6)
  1. PACLITAXEL. [Suspect]
     Active Substance: PACLITAXEL
     Indication: METASTASES TO LUNG
  2. CISPLATIN. [Suspect]
     Active Substance: CISPLATIN
     Indication: CONGENITAL TERATOMA
     Dosage: AS A PART OF TIP REGIMEN
     Route: 065
  3. IFOSFAMIDE. [Suspect]
     Active Substance: IFOSFAMIDE
     Indication: METASTASES TO LUNG
  4. CISPLATIN. [Suspect]
     Active Substance: CISPLATIN
     Indication: METASTASES TO LUNG
  5. PACLITAXEL. [Suspect]
     Active Substance: PACLITAXEL
     Indication: CONGENITAL TERATOMA
     Dosage: AS A PART OF TIP REGIMEN
     Route: 065
  6. IFOSFAMIDE. [Suspect]
     Active Substance: IFOSFAMIDE
     Indication: CONGENITAL TERATOMA
     Dosage: AS A PART OF TIP REGIMEN
     Route: 065

REACTIONS (1)
  - Febrile neutropenia [Fatal]
